FAERS Safety Report 14172824 (Version 2)
Quarter: 2017Q4

REPORT INFORMATION
  Report Type: Spontaneous
  Country: US (occurrence: US)
  Receive Date: 20171109
  Receipt Date: 20171117
  Transmission Date: 20180321
  Serious: Yes (Hospitalization, Other)
  Sender: FDA-Public Use
  Company Number: US-IBIGEN-2017.03138

PATIENT
  Age: 37 Year
  Sex: Male

DRUGS (10)
  1. LACTOBACILLUS [Concomitant]
     Active Substance: LACTOBACILLUS ACIDOPHILUS
  2. CLOZAPINE. [Concomitant]
     Active Substance: CLOZAPINE
  3. TRAMADOL. [Concomitant]
     Active Substance: TRAMADOL
  4. VANCOMYCIN 1 GRAM [Suspect]
     Active Substance: VANCOMYCIN
     Dosage: OVER 90 MINUTES
     Route: 042
     Dates: end: 20171019
  5. ETODOLAC. [Concomitant]
     Active Substance: ETODOLAC
  6. VANCOMYCIN 10 GRAM [Suspect]
     Active Substance: VANCOMYCIN
     Indication: PSOAS ABSCESS
     Dosage: OVER 90 MINUTES
     Route: 042
     Dates: end: 20171019
  7. PIPERACILLIN AND TAZOBACTAM [Suspect]
     Active Substance: PIPERACILLIN SODIUM\TAZOBACTAM SODIUM
     Dosage: OVER 30 MINUTES
     Route: 042
     Dates: end: 20171018
  8. CYCLOBENZAPRINE. [Concomitant]
     Active Substance: CYCLOBENZAPRINE
  9. ZOLOFT [Concomitant]
     Active Substance: SERTRALINE HYDROCHLORIDE
  10. HYDROXYZINE [Concomitant]
     Active Substance: HYDROXYZINE HYDROCHLORIDE

REACTIONS (3)
  - Drug level increased [Recovered/Resolved]
  - Nausea [Recovered/Resolved]
  - Blood creatinine increased [Recovered/Resolved]

NARRATIVE: CASE EVENT DATE: 20171018
